FAERS Safety Report 5866690-1 (Version None)
Quarter: 2008Q3

REPORT INFORMATION
  Report Type: 
  Country: None (occurrence: None)
  Receive Date: 20080902
  Receipt Date: 20080825
  Transmission Date: 20090109
  Serious: Yes (Other)
  Sender: FDA-Public Use
  Company Number: US-BAYER-200832045NA

PATIENT
  Sex: Male

DRUGS (1)
  1. AVELOX [Suspect]
     Indication: INFECTION
     Dosage: UNIT DOSE: 400 MG
     Route: 048
     Dates: start: 20080601

REACTIONS (3)
  - DIARRHOEA [None]
  - TENDONITIS [None]
  - VOMITING [None]
